FAERS Safety Report 6390732-0 (Version None)
Quarter: 2009Q4

REPORT INFORMATION
  Report Type: 
  Country: None (occurrence: None)
  Receive Date: 20091006
  Receipt Date: 20090928
  Transmission Date: 20100525
  Serious: Yes (Hospitalization)
  Sender: FDA-Public Use
  Company Number: PHHO2009US12009

PATIENT
  Sex: Female

DRUGS (12)
  1. NEORAL [Suspect]
     Indication: RENAL TRANSPLANT
     Dosage: 150 MG / DAY
     Route: 048
     Dates: start: 20060721
  2. CELLCEPT [Suspect]
     Indication: RENAL TRANSPLANT
     Dosage: UNK
     Route: 048
     Dates: start: 20060720
  3. PREDNISONE [Suspect]
     Indication: RENAL TRANSPLANT
     Dosage: UNK
     Route: 048
     Dates: start: 20060723
  4. CALCIUM CARBONATE [Concomitant]
  5. COLACE [Concomitant]
  6. ZETIA [Concomitant]
  7. PEPCID [Concomitant]
  8. POTASSIUM PHOSPHATES [Concomitant]
  9. METHIMAZOLE [Concomitant]
  10. MULTI-VITAMINS [Concomitant]
  11. NASACORT AQ [Concomitant]
  12. VALCYTE [Concomitant]

REACTIONS (5)
  - ACUTE MYOCARDIAL INFARCTION [None]
  - CATHETERISATION CARDIAC [None]
  - CHEST PAIN [None]
  - CORONARY ARTERIAL STENT INSERTION [None]
  - MYOCARDIAL ISCHAEMIA [None]
